FAERS Safety Report 8106398-5 (Version None)
Quarter: 2012Q1

REPORT INFORMATION
  Report Type: 
  Country: None (occurrence: None)
  Receive Date: 20120130
  Receipt Date: 20120117
  Transmission Date: 20120608
  Serious: Yes (Hospitalization)
  Sender: FDA-Public Use
  Company Number: DSU-2011-08554

PATIENT
  Sex: Male

DRUGS (1)
  1. OLMESARTAN MEDOXOMIL [Suspect]
     Indication: ESSENTIAL HYPERTENSION
     Dosage: 20 MG (320 MG, QD), PER ORAL
     Route: 048
     Dates: start: 20111001, end: 20111001

REACTIONS (2)
  - DYSPHAGIA [None]
  - LOCAL SWELLING [None]
